FAERS Safety Report 14776182 (Version 1)
Quarter: 2018Q2

REPORT INFORMATION
  Report Type: Spontaneous
  Country: US (occurrence: US)
  Receive Date: 20180418
  Receipt Date: 20180418
  Transmission Date: 20180711
  Serious: No
  Sender: FDA-Public Use
  Company Number: US-009507513-1804USA006644

PATIENT
  Age: 25 Year
  Sex: Female
  Weight: 63.49 kg

DRUGS (1)
  1. NUVARING [Suspect]
     Active Substance: ETHINYL ESTRADIOL\ETONOGESTREL
     Indication: CONTRACEPTION
     Dosage: 3 WEEKS IN, 1 WEEK BREAK, CYCLICAL
     Route: 067
     Dates: start: 2015

REACTIONS (3)
  - No adverse event [Unknown]
  - Product odour abnormal [Unknown]
  - Poor quality device used [Unknown]

NARRATIVE: CASE EVENT DATE: 201803
